FAERS Safety Report 9422791 (Version 1)
Quarter: 2013Q3

REPORT INFORMATION
  Report Type: Report from Study
  Country: US (occurrence: US)
  Receive Date: 20130726
  Receipt Date: 20130726
  Transmission Date: 20140515
  Serious: Yes (Other)
  Sender: FDA-Public Use
  Company Number: US-ABBOTT-13P-163-1120629-00

PATIENT
  Age: 64 Year
  Sex: Male
  Weight: 71.28 kg

DRUGS (1)
  1. MARINOL [Suspect]
     Indication: INCREASED APPETITE
     Dates: start: 201209

REACTIONS (4)
  - Hip fracture [Recovered/Resolved]
  - Fall [Recovered/Resolved]
  - Pain in extremity [Recovered/Resolved]
  - Abasia [Recovered/Resolved]
